FAERS Safety Report 15517720 (Version 1)
Quarter: 2018Q4

REPORT INFORMATION
  Report Type: Report from Study
  Country: IT (occurrence: IT)
  Receive Date: 20181017
  Receipt Date: 20181017
  Transmission Date: 20190205
  Serious: Yes (Other)
  Sender: FDA-Public Use
  Company Number: IT-MYLANLABS-2018M1077915

PATIENT
  Age: 45 Year
  Sex: Female

DRUGS (2)
  1. TRIATEC                            /00885601/ [Concomitant]
     Active Substance: RAMIPRIL
     Indication: HYPERTENSION
     Dosage: UNK
  2. LEVOFLOXACIN. [Suspect]
     Active Substance: LEVOFLOXACIN
     Indication: PNEUMONITIS
     Dosage: 1 DF, TOTAL
     Route: 048
     Dates: start: 20180505, end: 20180505

REACTIONS (3)
  - Throat irritation [Recovered/Resolved]
  - Lip oedema [Recovered/Resolved]
  - Generalised erythema [Recovered/Resolved]

NARRATIVE: CASE EVENT DATE: 20180505
